FAERS Safety Report 23405100 (Version 2)
Quarter: 2024Q1

REPORT INFORMATION
  Report Type: Spontaneous
  Country: CH (occurrence: CH)
  Receive Date: 20240116
  Receipt Date: 20240118
  Transmission Date: 20240410
  Serious: Yes (Disabling)
  Sender: FDA-Public Use
  Company Number: CH-ACRAF SpA-2024-033131

PATIENT

DRUGS (2)
  1. XCOPRI [Suspect]
     Active Substance: CENOBAMATE
     Indication: Product used for unknown indication
     Dosage: 200 MILLIGRAM
     Route: 048
  2. XCOPRI [Suspect]
     Active Substance: CENOBAMATE
     Dosage: 150 MILLIGRAM
     Route: 048

REACTIONS (3)
  - Wheelchair user [Recovered/Resolved]
  - Fatigue [Recovered/Resolved]
  - Gait inability [Recovered/Resolved]
